FAERS Safety Report 25504280 (Version 1)
Quarter: 2025Q3

REPORT INFORMATION
  Report Type: Report from Study
  Country: GB (occurrence: GB)
  Receive Date: 20250702
  Receipt Date: 20250702
  Transmission Date: 20251021
  Serious: Yes (Other)
  Sender: SANDOZ
  Company Number: GB-002147023-NVSC2023GB142971

PATIENT
  Sex: Female

DRUGS (2)
  1. OMNITROPE [Suspect]
     Active Substance: SOMATROPIN
     Indication: Hypopituitarism
     Route: 058
  2. OMNITROPE [Suspect]
     Active Substance: SOMATROPIN
     Dosage: 0.50 MG, QD(SUREPAL 10 10MG/1.5ML SOLUTION FOR INJECTION CARTRIDGE)
     Route: 058

REACTIONS (1)
  - Spinal operation [Unknown]
